FAERS Safety Report 13515364 (Version 1)
Quarter: 2017Q2

REPORT INFORMATION
  Report Type: Spontaneous
  Country: US (occurrence: US)
  Receive Date: 20170504
  Receipt Date: 20170504
  Transmission Date: 20170830
  Serious: No
  Sender: FDA-Public Use
  Company Number: US-BAUSCH-BL-2016-024063

PATIENT
  Age: 72 Year
  Sex: Female

DRUGS (7)
  1. GABAPENTIN. [Concomitant]
     Active Substance: GABAPENTIN
     Indication: NEURALGIA
  2. ZYCLARA [Suspect]
     Active Substance: IMIQUIMOD
     Indication: BASAL CELL CARCINOMA
     Dosage: IN THE TWO WEEKS SHE JUST USED IT FOR 5 DAYS IN EACH WEEK
     Route: 061
     Dates: start: 20160920
  3. ZYCLARA [Suspect]
     Active Substance: IMIQUIMOD
     Dosage: USED IT FOR 5 DAYS IN EACH WEEK
     Route: 061
     Dates: start: 20161024, end: 20161028
  4. ZYCLARA [Suspect]
     Active Substance: IMIQUIMOD
     Dosage: USED IT FOR 5 DAYS IN EACH WEEK
     Route: 061
     Dates: start: 20161017
  5. VERAPAMIL [Concomitant]
     Active Substance: VERAPAMIL HYDROCHLORIDE
     Indication: BLOOD PRESSURE ABNORMAL
     Route: 048
  6. LOSARTAN. [Concomitant]
     Active Substance: LOSARTAN
     Indication: BLOOD PRESSURE ABNORMAL
     Route: 048
  7. ZYCLARA [Suspect]
     Active Substance: IMIQUIMOD
     Route: 061
     Dates: start: 20161114

REACTIONS (3)
  - Erythema [Recovered/Resolved]
  - Off label use [Unknown]
  - Drug effect incomplete [Unknown]

NARRATIVE: CASE EVENT DATE: 2016
